FAERS Safety Report 22263540 (Version 3)
Quarter: 2023Q2

REPORT INFORMATION
  Report Type: Report from Study
  Country: US (occurrence: US)
  Receive Date: 20230428
  Receipt Date: 20230623
  Transmission Date: 20230722
  Serious: No
  Sender: FDA-Public Use
  Company Number: US-002147023-NVSC2023US093514

PATIENT
  Sex: Male

DRUGS (1)
  1. LEQVIO [Suspect]
     Active Substance: INCLISIRAN SODIUM
     Indication: Product used for unknown indication
     Dosage: UNK
     Route: 058
     Dates: start: 20230301

REACTIONS (6)
  - Vomiting [Recovered/Resolved]
  - Weight decreased [Recovered/Resolved]
  - Hiccups [Unknown]
  - General physical health deterioration [Unknown]
  - Pain in extremity [Unknown]
  - Nausea [Unknown]
